FAERS Safety Report 26181804 (Version 1)
Quarter: 2025Q4

REPORT INFORMATION
  Report Type: Spontaneous
  Country: US (occurrence: US)
  Receive Date: 20251221
  Receipt Date: 20251221
  Transmission Date: 20260117
  Serious: No
  Sender: Hibrow Healthcare
  Company Number: US-Hibrow Healthcare Private Ltd-2190933

PATIENT
  Age: 52 Year

DRUGS (3)
  1. BACLOFEN [Suspect]
     Active Substance: BACLOFEN
     Indication: Pain
  2. OXYCODONE [Suspect]
     Active Substance: OXYCODONE
  3. GABAPENTIN [Suspect]
     Active Substance: GABAPENTIN

REACTIONS (1)
  - Drug ineffective [Unknown]
